FAERS Safety Report 8913969 (Version 2)
Quarter: 2013Q1

REPORT INFORMATION
  Report Type: Spontaneous
  Country: US (occurrence: US)
  Receive Date: 20121119
  Receipt Date: 20130222
  Transmission Date: 20140127
  Serious: No
  Sender: FDA-Public Use
  Company Number: US-009507513-1211USA006009

PATIENT
  Age: 66 Year
  Sex: Female

DRUGS (2)
  1. EMEND [Suspect]
     Indication: PROPHYLAXIS OF NAUSEA AND VOMITING
     Dosage: UNK
     Route: 048
  2. DECADRON TABLETS [Suspect]

REACTIONS (4)
  - Retching [Unknown]
  - Headache [Unknown]
  - Accidental overdose [Unknown]
  - Drug dose omission [Unknown]
